FAERS Safety Report 5428889-8 (Version None)
Quarter: 2007Q3

REPORT INFORMATION
  Report Type: 
  Country: None (occurrence: None)
  Receive Date: 20070827
  Receipt Date: 20070810
  Transmission Date: 20080115
  Serious: Yes (Other)
  Sender: FDA-Public Use
  Company Number: 2007RR-09185

PATIENT
  Age: 27 Year
  Sex: Male

DRUGS (1)
  1. MINOCYCLINE HYDROCHLORIDE [Suspect]

REACTIONS (3)
  - METASTASES TO LYMPH NODES [None]
  - PAPILLARY THYROID CANCER [None]
  - PIGMENTATION DISORDER [None]
